FAERS Safety Report 17537439 (Version 2)
Quarter: 2020Q1

REPORT INFORMATION
  Report Type: Spontaneous
  Country: US (occurrence: US)
  Receive Date: 20200313
  Receipt Date: 20200326
  Transmission Date: 20200409
  Serious: Yes (Hospitalization)
  Sender: FDA-Public Use
  Company Number: US-VERTEX PHARMACEUTICALS-2020-004819

PATIENT
  Age: 14 Year
  Sex: Male

DRUGS (10)
  1. ALTERRA [Concomitant]
  2. TRIKAFTA [Suspect]
     Active Substance: ELEXACAFTOR\IVACAFTOR\TEZACAFTOR
     Indication: CYSTIC FIBROSIS
     Dosage: 2 TABS (100MG ELEXACAFTOR/50MG TEZACAFTOR/75MG IVACAFTOR) IN AM AND 1 TAB (150MG IVACAFTOR) IN PM
     Route: 048
     Dates: start: 20191223
  3. CREON [Concomitant]
     Active Substance: PANCRELIPASE AMYLASE\PANCRELIPASE LIPASE\PANCRELIPASE PROTEASE
  4. HYDROCORTISONE. [Concomitant]
     Active Substance: HYDROCORTISONE
  5. MONTELUKAST [Concomitant]
     Active Substance: MONTELUKAST SODIUM
  6. TOBRAMYCIN. [Concomitant]
     Active Substance: TOBRAMYCIN
  7. CAYSTON [Concomitant]
     Active Substance: AZTREONAM
  8. PULMOZYME [Concomitant]
     Active Substance: DORNASE ALFA
  9. PREDNISONE. [Concomitant]
     Active Substance: PREDNISONE
  10. PROVENTIL [Concomitant]
     Active Substance: ALBUTEROL

REACTIONS (1)
  - Biopsy liver [Unknown]

NARRATIVE: CASE EVENT DATE: 20200217
